FAERS Safety Report 13584475 (Version 1)
Quarter: 2017Q2

REPORT INFORMATION
  Report Type: Spontaneous
  Country: JP (occurrence: JP)
  Receive Date: 20170526
  Receipt Date: 20170526
  Transmission Date: 20170830
  Serious: Yes (Other)
  Sender: FDA-Public Use
  Company Number: JP-ACCORD-051700

PATIENT
  Age: 68 Year
  Sex: Female

DRUGS (3)
  1. WARFARIN [Concomitant]
     Active Substance: WARFARIN
     Indication: PULMONARY THROMBOSIS
  2. CISPLATIN. [Suspect]
     Active Substance: CISPLATIN
     Indication: GALLBLADDER CANCER
     Dosage: ON DAY 1 AND 8, 3 WEEKS PER CYCLE ?5 CYCLE
  3. GEMCITABINE/GEMCITABINE HYDROCHLORIDE [Suspect]
     Active Substance: GEMCITABINE\GEMCITABINE HYDROCHLORIDE
     Indication: GALLBLADDER CANCER
     Dosage: ON DAY 1 AND 8, 3 WEEKS PER CYCLE ?5 CYCLE

REACTIONS (4)
  - Jaundice cholestatic [None]
  - Leukopenia [Unknown]
  - Malignant neoplasm progression [None]
  - Gallbladder cancer metastatic [None]
